FAERS Safety Report 21599559 (Version 3)
Quarter: 2024Q4

REPORT INFORMATION
  Report Type: Report from Study
  Country: CA (occurrence: CA)
  Receive Date: 20221115
  Receipt Date: 20241216
  Transmission Date: 20250114
  Serious: Yes (Other)
  Sender: CSL BEHRING
  Company Number: CA-BEH-2022152102

PATIENT
  Age: 49 Year
  Sex: Female

DRUGS (5)
  1. HAEGARDA [Suspect]
     Active Substance: HUMAN C1-ESTERASE INHIBITOR
     Indication: Hereditary angioedema with normal C1 esterase inhibitor
     Dosage: UNK
     Route: 058
     Dates: start: 2015
  2. NORVASC [Concomitant]
     Active Substance: AMLODIPINE BESYLATE
  3. FIRAZYR [Concomitant]
     Active Substance: ICATIBANT ACETATE
  4. AMLODIPINE BESYLATE [Concomitant]
     Active Substance: AMLODIPINE BESYLATE
  5. ICATIBANT ACETATE [Concomitant]
     Active Substance: ICATIBANT ACETATE

REACTIONS (3)
  - Pulmonary embolism [Unknown]
  - Gait disturbance [Unknown]
  - Hypertension [Unknown]

NARRATIVE: CASE EVENT DATE: 20180101
